FAERS Safety Report 7770628-X (Version None)
Quarter: 2011Q3

REPORT INFORMATION
  Report Type: 
  Country: None (occurrence: None)
  Receive Date: 20110922
  Receipt Date: 20110920
  Transmission Date: 20111222
  Serious: Yes (Death, Hospitalization, Other)
  Sender: FDA-Public Use
  Company Number: PHHY2011BR22941

PATIENT
  Sex: Male
  Weight: 74 kg

DRUGS (1)
  1. AFINITOR [Suspect]
     Indication: RENAL CANCER
     Dosage: 1 DF, DAILY
     Route: 048

REACTIONS (11)
  - BLOOD CREATININE INCREASED [None]
  - METASTASES TO BONE [None]
  - NEOPLASM MALIGNANT [None]
  - METASTASES TO SPINE [None]
  - NEOPLASM PROGRESSION [None]
  - INFLUENZA [None]
  - GENERAL PHYSICAL HEALTH DETERIORATION [None]
  - METASTASES TO LIVER [None]
  - CONSTIPATION [None]
  - SINUSITIS [None]
  - METASTASES TO LUNG [None]
